FAERS Safety Report 7161830-9 (Version None)
Quarter: 2010Q4

REPORT INFORMATION
  Report Type: 
  Country: None (occurrence: None)
  Receive Date: 20101215
  Receipt Date: 20100705
  Transmission Date: 20110411
  Serious: Yes (Other)
  Sender: FDA-Public Use
  Company Number: JP-PFIZER INC-2010083256

PATIENT
  Age: 75 Year
  Sex: Male

DRUGS (1)
  1. LYRICA [Suspect]
     Dosage: 150MG/DAY
     Route: 048
     Dates: start: 20100701

REACTIONS (2)
  - EPILEPSY [None]
  - TREMOR [None]
